FAERS Safety Report 9410466 (Version 1)
Quarter: 2013Q3

REPORT INFORMATION
  Report Type: Spontaneous
  Country: US (occurrence: None)
  Receive Date: 20130718
  Receipt Date: 20130718
  Transmission Date: 20140515
  Serious: Yes (Hospitalization)
  Sender: FDA-Public Use
  Company Number: None

PATIENT
  Age: 53 Year
  Sex: Male
  Weight: 51 kg

DRUGS (2)
  1. 5-FLUOROURACIL (5-FU) [Suspect]
     Dates: end: 20130709
  2. OXALIPLATIN (ELOXATIN) [Suspect]
     Dates: end: 20130709

REACTIONS (1)
  - Pneumonia [None]
